FAERS Safety Report 23333301 (Version 1)
Quarter: 2023Q4

REPORT INFORMATION
  Report Type: Spontaneous
  Country: US (occurrence: US)
  Receive Date: 20231222
  Receipt Date: 20231222
  Transmission Date: 20240109
  Serious: No
  Sender: FDA-Public Use
  Company Number: US-CTI BIOPHARMA-2023US04149

PATIENT

DRUGS (4)
  1. VONJO [Suspect]
     Active Substance: PACRITINIB
     Indication: Myelofibrosis
     Dosage: 200 MG, BID
     Route: 048
     Dates: start: 20231004
  2. OMEPRAZOLE [Concomitant]
     Active Substance: OMEPRAZOLE
  3. EXCEDRIN EXTRA STRENGTH [Concomitant]
     Active Substance: ACETAMINOPHEN\ASPIRIN\CAFFEINE
  4. MAGNESIUM CITRATE [Concomitant]
     Active Substance: MAGNESIUM CITRATE

REACTIONS (4)
  - Fatigue [Recovered/Resolved]
  - Pain [Recovered/Resolved]
  - Illness [Unknown]
  - Nausea [Recovered/Resolved]

NARRATIVE: CASE EVENT DATE: 20231006
